FAERS Safety Report 5359493-8 (Version None)
Quarter: 2007Q2

REPORT INFORMATION
  Report Type: 
  Country: None (occurrence: None)
  Receive Date: 20070615
  Receipt Date: 20070612
  Transmission Date: 20071010
  Serious: Yes (Hospitalization)
  Sender: FDA-Public Use
  Company Number: US-MERCK-0704USA05887

PATIENT
  Age: 66 Year
  Sex: Male
  Weight: 84 kg

DRUGS (27)
  1. JANUVIA [Suspect]
     Indication: DIABETES MELLITUS NON-INSULIN-DEPENDENT
     Route: 048
     Dates: start: 20070206, end: 20070421
  2. LANTUS [Concomitant]
     Indication: DIABETES MELLITUS NON-INSULIN-DEPENDENT
     Route: 058
     Dates: start: 20070421
  3. LANTUS [Concomitant]
     Route: 058
     Dates: start: 20070314, end: 20070315
  4. VYTORIN [Concomitant]
     Indication: DYSLIPIDAEMIA
     Route: 048
     Dates: start: 20060430
  5. BLINDED THERAPY [Concomitant]
     Route: 065
     Dates: start: 20041110
  6. ATACAND [Concomitant]
     Indication: HYPERTENSION
     Route: 048
     Dates: start: 20050727
  7. HYDROCHLOROTHIAZIDE [Concomitant]
     Indication: HYPERTENSION
     Route: 065
     Dates: start: 20041117
  8. NIASPAN ER [Concomitant]
     Indication: DYSLIPIDAEMIA
     Route: 065
     Dates: start: 20011017
  9. ACTOS [Concomitant]
     Indication: DIABETES MELLITUS NON-INSULIN-DEPENDENT
     Route: 065
     Dates: start: 20011017
  10. PRECOSE [Concomitant]
     Indication: DIABETES MELLITUS NON-INSULIN-DEPENDENT
     Route: 065
     Dates: start: 20050726
  11. VITAMINS (UNSPECIFIED) [Concomitant]
     Route: 048
     Dates: start: 20070207
  12. ULTRAM [Concomitant]
     Indication: PAIN
     Route: 065
     Dates: start: 20070307
  13. ASPIRIN [Concomitant]
     Route: 065
     Dates: start: 20061227, end: 20070421
  14. ASPIRIN [Concomitant]
     Route: 065
     Dates: start: 20070207, end: 20070315
  15. CEFAZOLIN [Concomitant]
     Route: 065
     Dates: start: 20070314, end: 20070314
  16. SENOKOT-S TABLETS [Concomitant]
     Route: 048
     Dates: start: 20070314, end: 20070314
  17. ONDANSETRON [Concomitant]
     Route: 065
     Dates: start: 20070314, end: 20070314
  18. COUMADIN [Concomitant]
     Route: 065
     Dates: start: 20070314, end: 20070315
  19. SODIUM CHLORIDE [Concomitant]
     Route: 065
     Dates: start: 20070315, end: 20070316
  20. PERCOCET [Concomitant]
     Indication: PAIN
     Route: 065
     Dates: start: 20070315, end: 20070316
  21. TEMAZEPAM [Concomitant]
     Route: 065
     Dates: start: 20070315, end: 20070315
  22. ZOFRAN [Concomitant]
     Route: 065
     Dates: start: 20070314, end: 20070315
  23. DILAUDID [Concomitant]
     Route: 065
     Dates: start: 20070314, end: 20070315
  24. PROTONIX [Concomitant]
     Indication: DYSPEPSIA
     Route: 065
     Dates: start: 20070423
  25. DARVOCET [Concomitant]
     Indication: PAIN
     Route: 048
     Dates: start: 20070207, end: 20070308
  26. ANCEF [Concomitant]
     Route: 065
     Dates: start: 20070314, end: 20070314
  27. ANCEF [Concomitant]
     Route: 065
     Dates: start: 20070315, end: 20070316

REACTIONS (2)
  - HAEMATOMA [None]
  - THROMBOCYTOPENIC PURPURA [None]
